FAERS Safety Report 4933966-1 (Version None)
Quarter: 2006Q1

REPORT INFORMATION
  Report Type: 
  Country: None (occurrence: None)
  Receive Date: 20060303
  Receipt Date: 20060220
  Transmission Date: 20060701
  Serious: Yes (Other)
  Sender: FDA-Public Use
  Company Number: 2006-00655

PATIENT
  Age: 48 Year
  Sex: Female

DRUGS (1)
  1. TRELSTAR DEPOT [Suspect]
     Indication: UTERINE LEIOMYOMA
     Dosage: 3 MG, Q 28 DAYS X3, INTRAMUSCULAR
     Route: 030

REACTIONS (3)
  - ENDOMETRIAL DISORDER [None]
  - GRANULOMA [None]
  - VASCULITIS NECROTISING [None]
